FAERS Safety Report 7846477-0 (Version None)
Quarter: 2011Q4

REPORT INFORMATION
  Report Type: 
  Country: None (occurrence: None)
  Receive Date: 20111025
  Receipt Date: 20111025
  Transmission Date: 20120403
  Serious: Yes (Hospitalization, Other)
  Sender: FDA-Public Use
  Company Number: None

PATIENT
  Age: 30 Year
  Sex: Female
  Weight: 56.699 kg

DRUGS (2)
  1. WELLBUTRIN XL [Suspect]
     Indication: IRRITABILITY
     Dosage: 150
     Route: 048
     Dates: start: 20110228, end: 20110410
  2. WELLBUTRIN XL [Suspect]
     Indication: DEPRESSED MOOD
     Dosage: 150
     Route: 048
     Dates: start: 20110228, end: 20110410

REACTIONS (6)
  - FALL [None]
  - HEAD INJURY [None]
  - LOSS OF CONSCIOUSNESS [None]
  - CONVULSION [None]
  - ROAD TRAFFIC ACCIDENT [None]
  - LACERATION [None]
